FAERS Safety Report 5379270-1 (Version None)
Quarter: 2007Q3

REPORT INFORMATION
  Report Type: 
  Country: None (occurrence: None)
  Receive Date: 20070705
  Receipt Date: 20070627
  Transmission Date: 20080115
  Serious: Yes (Other)
  Sender: FDA-Public Use
  Company Number: FR-PFIZER INC-2007045182

PATIENT
  Sex: Female
  Weight: 52 kg

DRUGS (4)
  1. LYRICA [Suspect]
     Indication: BACK PAIN
  2. PRAVASTATIN [Concomitant]
     Route: 048
  3. OPTRUMA [Concomitant]
     Route: 048
  4. TRAMADOL HCL [Concomitant]
     Route: 048

REACTIONS (2)
  - COMMUNICATION DISORDER [None]
  - SPEECH DISORDER [None]
